FAERS Safety Report 6997153-8 (Version None)
Quarter: 2010Q3

REPORT INFORMATION
  Report Type: 
  Country: None (occurrence: None)
  Receive Date: 20100918
  Receipt Date: 20090915
  Transmission Date: 20110219
  Serious: No
  Sender: FDA-Public Use
  Company Number: US-WYE-H11009309

PATIENT
  Sex: Male

DRUGS (2)
  1. PRISTIQ [Suspect]
     Indication: DEPRESSION
  2. LORAZEPAM [Concomitant]

REACTIONS (3)
  - HANGOVER [None]
  - INSOMNIA [None]
  - PANIC ATTACK [None]
